FAERS Safety Report 9220666 (Version 2)
Quarter: 2013Q2

REPORT INFORMATION
  Report Type: Report from Study
  Country: VE (occurrence: VE)
  Receive Date: 20130409
  Receipt Date: 20130410
  Transmission Date: 20140414
  Serious: Yes (Hospitalization)
  Sender: FDA-Public Use
  Company Number: VE-ABBOTT-13P-178-1072352-00

PATIENT
  Age: 42 Year
  Sex: Female
  Weight: 67 kg

DRUGS (1)
  1. HUMIRA [Suspect]
     Indication: ANKYLOSING SPONDYLITIS
     Route: 058
     Dates: start: 20120327, end: 20121230

REACTIONS (3)
  - Urinary incontinence [Recovered/Resolved]
  - Hysterosalpingo-oophorectomy [Recovered/Resolved]
  - Flatulence [Recovered/Resolved]
